FAERS Safety Report 11707677 (Version 3)
Quarter: 2016Q4

REPORT INFORMATION
  Report Type: Spontaneous
  Country: DK (occurrence: DK)
  Receive Date: 20151106
  Receipt Date: 20161206
  Transmission Date: 20170206
  Serious: Yes (Hospitalization)
  Sender: FDA-Public Use
  Company Number: DK-ABBVIE-15P-044-1496543-00

PATIENT
  Age: 70 Year
  Sex: Female

DRUGS (2)
  1. VIMPAT [Suspect]
     Active Substance: LACOSAMIDE
     Indication: STATUS EPILEPTICUS
     Route: 048
  2. DEPRAKINE RETARD [Suspect]
     Active Substance: VALPROIC ACID
     Indication: STATUS EPILEPTICUS
     Dosage: EXTENDED RELEASE
     Route: 048

REACTIONS (3)
  - Hyponatraemia [Recovering/Resolving]
  - Dry mouth [Recovering/Resolving]
  - Polydipsia [Recovering/Resolving]

NARRATIVE: CASE EVENT DATE: 20131117
